FAERS Safety Report 18020407 (Version 2)
Quarter: 2020Q4

REPORT INFORMATION
  Report Type: Spontaneous
  Country: DE (occurrence: DE)
  Receive Date: 20200714
  Receipt Date: 20201103
  Transmission Date: 20210113
  Serious: Yes (Other)
  Sender: FDA-Public Use
  Company Number: NVSC2020DE190770

PATIENT
  Age: 77 Year
  Sex: Male

DRUGS (4)
  1. LIXIANA [Concomitant]
     Active Substance: EDOXABAN TOSYLATE
     Indication: PRODUCT USED FOR UNKNOWN INDICATION
     Dosage: UNK
     Route: 065
  2. BISOPROLOL [Concomitant]
     Active Substance: BISOPROLOL
     Indication: PRODUCT USED FOR UNKNOWN INDICATION
     Dosage: UNK
     Route: 065
  3. BEOVU [Suspect]
     Active Substance: BROLUCIZUMAB-DBLL
     Indication: CHOROIDAL NEOVASCULARISATION
  4. BEOVU [Suspect]
     Active Substance: BROLUCIZUMAB-DBLL
     Indication: NEOVASCULAR AGE-RELATED MACULAR DEGENERATION
     Dosage: UNK UNK, ONCE/SINGLE
     Route: 031
     Dates: start: 20200602, end: 20200602

REACTIONS (8)
  - Ocular hyperaemia [Recovering/Resolving]
  - Eye haematoma [Recovered/Resolved]
  - Eye haematoma [Recovered/Resolved]
  - Food allergy [Unknown]
  - Eye irritation [Recovering/Resolving]
  - Pruritus [Recovered/Resolved]
  - Visual impairment [Recovering/Resolving]
  - Urticaria [Recovered/Resolved]

NARRATIVE: CASE EVENT DATE: 20200612
